FAERS Safety Report 6744140-0 (Version None)
Quarter: 2010Q2

REPORT INFORMATION
  Report Type: 
  Country: None (occurrence: None)
  Receive Date: 20100527
  Receipt Date: 20100517
  Transmission Date: 20101027
  Serious: Yes (Hospitalization)
  Sender: FDA-Public Use
  Company Number: B0657135A

PATIENT
  Age: 45 Year
  Sex: Female

DRUGS (6)
  1. TAGAMET [Suspect]
     Indication: PREMEDICATION
     Route: 048
     Dates: start: 20100217, end: 20100217
  2. CELOCURINE [Suspect]
     Route: 042
     Dates: start: 20100217, end: 20100217
  3. MIDAZOLAM HCL [Suspect]
     Route: 042
     Dates: start: 20100217, end: 20100217
  4. PROPOFOL [Suspect]
     Route: 042
     Dates: start: 20100217, end: 20100217
  5. SUFENTA PRESERVATIVE FREE [Suspect]
     Route: 065
     Dates: start: 20100217, end: 20100217
  6. ATARAX [Concomitant]
     Route: 065

REACTIONS (7)
  - ANAPHYLACTIC SHOCK [None]
  - GENERALISED ERYTHEMA [None]
  - HISTAMINE LEVEL INCREASED [None]
  - HYPOTENSION [None]
  - OXYGEN SATURATION DECREASED [None]
  - TACHYCARDIA [None]
  - TRYPTASE INCREASED [None]
